FAERS Safety Report 9792461 (Version 1)
Quarter: 2014Q1

REPORT INFORMATION
  Report Type: Spontaneous
  Country: US (occurrence: US)
  Receive Date: 20140102
  Receipt Date: 20140102
  Transmission Date: 20141002
  Serious: No
  Sender: FDA-Public Use
  Company Number: US-BIOGENIDEC-2013BI123959

PATIENT
  Sex: Female

DRUGS (16)
  1. TECFIDERA [Suspect]
     Indication: MULTIPLE SCLEROSIS
     Route: 048
  2. TYSABRI [Concomitant]
  3. AMPYRA ER [Concomitant]
  4. NEURONTIN [Concomitant]
  5. DESMOPRESSIN ACETATE [Concomitant]
  6. PRIMIDONE [Concomitant]
  7. ACTONEL [Concomitant]
  8. BACLOFEN [Concomitant]
  9. WELLBUTRIN SR [Concomitant]
  10. LEXAPRO [Concomitant]
  11. BENZTROPINE MES [Concomitant]
  12. CALCIUM [Concomitant]
  13. ZANAFLEX [Concomitant]
  14. CRANBERRY [Concomitant]
  15. CVS VITAMIN C [Concomitant]
  16. COMPLETE MULTIVITAMIN [Concomitant]

REACTIONS (1)
  - Depression [Unknown]
